FAERS Safety Report 5340482-4 (Version None)
Quarter: 2007Q2

REPORT INFORMATION
  Report Type: 
  Country: None (occurrence: None)
  Receive Date: 20070531
  Receipt Date: 20070523
  Transmission Date: 20071010
  Serious: Yes (Life-Threatening, Hospitalization)
  Sender: FDA-Public Use
  Company Number: GB-BRISTOL-MYERS SQUIBB COMPANY-13798350

PATIENT
  Age: 59 Year
  Sex: Female

DRUGS (5)
  1. CYCLOPHOSPHAMIDE [Suspect]
     Indication: BREAST CANCER
     Dates: start: 20061003, end: 20061128
  2. METHOTREXATE SODIUM [Suspect]
     Indication: BREAST CANCER
     Dates: start: 20061003, end: 20061128
  3. NEULASTA [Suspect]
     Indication: BREAST CANCER
     Dates: start: 20061003, end: 20061128
  4. EPIRUBICIN [Suspect]
     Indication: BREAST CANCER
     Dates: start: 20061003, end: 20061128
  5. FLUOROURACIL [Suspect]
     Indication: BREAST CANCER
     Dates: start: 20061003, end: 20061128

REACTIONS (2)
  - DYSPNOEA [None]
  - PYREXIA [None]
